FAERS Safety Report 5120220-0 (Version None)
Quarter: 2006Q4

REPORT INFORMATION
  Report Type: 
  Country: None (occurrence: None)
  Receive Date: 20061004
  Receipt Date: 20060424
  Transmission Date: 20070319
  Serious: Yes (Hospitalization, Other)
  Sender: FDA-Public Use
  Company Number: PL-BRISTOL-MYERS SQUIBB COMPANY-13355086

PATIENT
  Age: 72 Year
  Sex: Female

DRUGS (4)
  1. DASATINIB [Suspect]
     Indication: CHRONIC MYELOID LEUKAEMIA
     Dosage: INTERRUPTED 23APR06 RE-STARTED 12MAY06
     Route: 048
     Dates: start: 20060126, end: 20060424
  2. ENALAPRIL MALEATE [Concomitant]
     Dates: start: 19750101
  3. ATENOLOL [Concomitant]
     Dates: start: 19750101
  4. AMLODIPINE [Concomitant]
     Dates: start: 19750101

REACTIONS (3)
  - ATRIAL FIBRILLATION [None]
  - HYPERTENSION [None]
  - PLEURAL EFFUSION [None]
